FAERS Safety Report 13038635 (Version 15)
Quarter: 2022Q4

REPORT INFORMATION
  Report Type: Report from Study
  Country: JP (occurrence: JP)
  Receive Date: 20161219
  Receipt Date: 20221019
  Transmission Date: 20230113
  Serious: Yes (Hospitalization, Disabling, Other)
  Sender: FDA-Public Use
  Company Number: JP-AEGERION PHARMACEUTICAL INC.-AEGR002872

PATIENT

DRUGS (39)
  1. METRELEPTIN [Suspect]
     Active Substance: METRELEPTIN
     Indication: Lipoatrophy
     Dosage: 2 MG, QD
     Route: 058
     Dates: start: 200301, end: 20130923
  2. METRELEPTIN [Suspect]
     Active Substance: METRELEPTIN
     Dosage: 2 MG, QD
     Route: 058
     Dates: start: 20130924, end: 20210824
  3. VICTOZA [Concomitant]
     Active Substance: LIRAGLUTIDE
     Indication: Product used for unknown indication
     Dosage: 0.9 MG/DAY
     Dates: end: 20160724
  4. LANTUS [Concomitant]
     Active Substance: INSULIN GLARGINE
     Indication: Product used for unknown indication
     Dosage: 6 IU, QD
     Dates: start: 20140512, end: 20160809
  5. IMIDAPRIL [Concomitant]
     Active Substance: IMIDAPRIL
     Indication: Product used for unknown indication
     Dosage: 5 MG, QD
     Route: 048
     Dates: start: 20150420, end: 20161023
  6. NOVORAPID [Concomitant]
     Active Substance: INSULIN ASPART
     Indication: Product used for unknown indication
     Dosage: 22 IU/DAY
     Dates: start: 20160726, end: 20160729
  7. NOVORAPID [Concomitant]
     Active Substance: INSULIN ASPART
     Dosage: 28 IU/DAY
     Dates: start: 20160730, end: 20160806
  8. NOVORAPID [Concomitant]
     Active Substance: INSULIN ASPART
     Dosage: 24 IU/DAY
     Dates: start: 20160807, end: 20160807
  9. NOVORAPID [Concomitant]
     Active Substance: INSULIN ASPART
     Dosage: 20 IU/DAY
     Dates: start: 20160808, end: 20160808
  10. NOVORAPID [Concomitant]
     Active Substance: INSULIN ASPART
     Dosage: 14 IU/DAY
     Dates: start: 20160809, end: 20160809
  11. NOVORAPID [Concomitant]
     Active Substance: INSULIN ASPART
     Dosage: 8 IU/DAY
     Dates: start: 20160810, end: 20160810
  12. PIOGLITAZONE                       /01460202/ [Concomitant]
     Indication: Product used for unknown indication
     Dosage: 15 MG/DAY
     Route: 048
     Dates: start: 20160801, end: 20160811
  13. PIOGLITAZONE                       /01460202/ [Concomitant]
     Dosage: 30 MG/DAY
     Dates: start: 20160812, end: 20201005
  14. METGLUCO [Concomitant]
     Active Substance: METFORMIN HYDROCHLORIDE
     Indication: Product used for unknown indication
     Dosage: 750 MG/DAY
     Route: 048
     Dates: start: 20160804, end: 20160809
  15. METGLUCO [Concomitant]
     Active Substance: METFORMIN HYDROCHLORIDE
     Dosage: 1500 MG/DAY
     Dates: start: 20160810, end: 20180520
  16. METGLUCO [Concomitant]
     Active Substance: METFORMIN HYDROCHLORIDE
     Dosage: 500 MG, QD
     Route: 048
     Dates: start: 20180521, end: 20180722
  17. VOGLIBOSE [Concomitant]
     Active Substance: VOGLIBOSE
     Indication: Product used for unknown indication
     Dosage: 0.9 MG/DAY
     Route: 048
     Dates: start: 20160809, end: 20170924
  18. VOGLIBOSE [Concomitant]
     Active Substance: VOGLIBOSE
     Dosage: 0.4 MILLIGRAM, QD
     Route: 048
     Dates: start: 20190122, end: 20200105
  19. MITIGLINIDE CALCIUM HYDRATE\VOGLIBOSE [Concomitant]
     Active Substance: MITIGLINIDE CALCIUM HYDRATE\VOGLIBOSE
     Indication: Product used for unknown indication
     Dosage: 2 DOSAGE/FORM/DAY
     Route: 048
     Dates: start: 20170925, end: 20190721
  20. AMLODIPINE BESYLATE\IRBESARTAN [Concomitant]
     Active Substance: AMLODIPINE BESYLATE\IRBESARTAN
     Indication: Hypertension
     Dosage: 1 DOSAGE FORM, QD
     Route: 048
     Dates: start: 20161024, end: 20180121
  21. AMLODIPINE BESYLATE\IRBESARTAN [Concomitant]
     Active Substance: AMLODIPINE BESYLATE\IRBESARTAN
     Dosage: 1 DOSAGE FORM, QD
     Route: 048
     Dates: start: 20180122, end: 20200105
  22. AZOSEMIDE [Concomitant]
     Active Substance: AZOSEMIDE
     Indication: Nephropathy
     Dosage: 30 MG/DAY
     Route: 048
     Dates: start: 20161128, end: 20180422
  23. FUROSEMIDE [Concomitant]
     Active Substance: FUROSEMIDE
     Indication: Product used for unknown indication
     Dosage: 80 MG, QD
     Route: 048
     Dates: start: 20180423, end: 20180520
  24. FUROSEMIDE [Concomitant]
     Active Substance: FUROSEMIDE
     Dosage: 60 MG, QD
     Route: 048
     Dates: start: 20180521, end: 20200105
  25. INSULIN GLARGINE [Concomitant]
     Active Substance: INSULIN GLARGINE
     Indication: Product used for unknown indication
     Dosage: 10 IU, QD
     Dates: start: 20180521, end: 20180617
  26. INSULIN GLARGINE [Concomitant]
     Active Substance: INSULIN GLARGINE
     Dosage: 20 IU, QD
     Dates: start: 20180618, end: 20191124
  27. INSULIN GLARGINE [Concomitant]
     Active Substance: INSULIN GLARGINE
     Dosage: 16 IU INTERNATIONAL UNIT(S), QD
     Dates: start: 20191125, end: 20200105
  28. INSULIN GLARGINE [Concomitant]
     Active Substance: INSULIN GLARGINE
     Dosage: 4 UNITS, QD
     Dates: start: 20210419, end: 20210518
  29. INSULIN GLARGINE [Concomitant]
     Active Substance: INSULIN GLARGINE
     Dosage: 12 UNITS, QD
     Dates: start: 20210519, end: 20210824
  30. MIRCERA [Concomitant]
     Active Substance: METHOXY POLYETHYLENE GLYCOL-EPOETIN BETA
     Indication: Nephrogenic anaemia
     Dosage: 50 MCG, QD
     Dates: start: 20180723, end: 20180723
  31. MIRCERA [Concomitant]
     Active Substance: METHOXY POLYETHYLENE GLYCOL-EPOETIN BETA
     Dosage: 50 MCG, QD
     Dates: start: 20181015, end: 20191223
  32. BISOPROLOL [Concomitant]
     Active Substance: BISOPROLOL
     Indication: Product used for unknown indication
     Dosage: 2.5 MILLIGRAM, QD
     Route: 048
     Dates: start: 20191223, end: 20200125
  33. TOFOGLIFLOZIN [Concomitant]
     Active Substance: TOFOGLIFLOZIN
     Indication: Product used for unknown indication
     Dosage: 20 MG/DAY
     Route: 048
     Dates: start: 20161226, end: 20200105
  34. IRBESARTAN\TRICHLORMETHIAZIDE [Concomitant]
     Active Substance: IRBESARTAN\TRICHLORMETHIAZIDE
     Indication: Product used for unknown indication
     Dosage: 1 DOSAGE FORM, QD
     Route: 048
     Dates: start: 20180423, end: 20200105
  35. NIFEDIPINE [Concomitant]
     Active Substance: NIFEDIPINE
     Indication: Product used for unknown indication
     Dosage: 10 MG, QD
     Route: 048
     Dates: start: 20190121, end: 20200105
  36. NEXIUM [Concomitant]
     Active Substance: ESOMEPRAZOLE MAGNESIUM
     Indication: Gastrooesophageal reflux disease
     Dosage: 20 MILLIGRAM, QD
     Route: 048
     Dates: start: 20190218, end: 20200105
  37. LINAGLIPTIN [Concomitant]
     Active Substance: LINAGLIPTIN
     Indication: Product used for unknown indication
     Dosage: 5 MILLIGRAM, QD
     Route: 048
     Dates: start: 20200211, end: 20210824
  38. UNASYN [AMPICILLIN SODIUM;SULBACTAM SODIUM] [Concomitant]
     Indication: Cellulitis
     Dosage: UNK
     Dates: start: 20160725, end: 20160807
  39. UNASYN                             /00903602/ [Concomitant]
     Indication: Cellulitis
     Dosage: UNK
     Dates: start: 20160808, end: 20160828

REACTIONS (7)
  - Nephropathy [Recovered/Resolved with Sequelae]
  - Cellulitis [Recovering/Resolving]
  - Chronic kidney disease [Not Recovered/Not Resolved]
  - Diabetes mellitus inadequate control [Not Recovered/Not Resolved]
  - Hypertension [Recovering/Resolving]
  - Nephrogenic anaemia [Recovering/Resolving]
  - Gastrooesophageal reflux disease [Recovered/Resolved]

NARRATIVE: CASE EVENT DATE: 20151228
